FAERS Safety Report 5888792-6 (Version None)
Quarter: 2008Q3

REPORT INFORMATION
  Report Type: 
  Country: None (occurrence: None)
  Receive Date: 20080917
  Receipt Date: 20080917
  Transmission Date: 20090109
  Serious: Yes (Disabling)
  Sender: FDA-Public Use
  Company Number: None

PATIENT
  Sex: Female

DRUGS (1)
  1. ENDEAVOR STENT MEDTRONIC [Suspect]
     Indication: ANGIOPLASTY
     Dates: start: 20080910, end: 20080910

REACTIONS (2)
  - MEDICAL DEVICE COMPLICATION [None]
  - PROCEDURAL COMPLICATION [None]
